FAERS Safety Report 6994623-3 (Version None)
Quarter: 2010Q3

REPORT INFORMATION
  Report Type: 
  Country: None (occurrence: None)
  Receive Date: 20100915
  Receipt Date: 20100915
  Transmission Date: 20110219
  Serious: No
  Sender: FDA-Public Use
  Company Number: None

PATIENT
  Age: 60 Year
  Sex: Male

DRUGS (1)
  1. ANAKINRA [Suspect]
     Dosage: 100 MG EVERY DAY SQ
     Route: 058
     Dates: start: 20100712, end: 20100718

REACTIONS (2)
  - DYSPEPSIA [None]
  - FURUNCLE [None]
